FAERS Safety Report 5850533-6 (Version None)
Quarter: 2008Q3

REPORT INFORMATION
  Report Type: 
  Country: None (occurrence: None)
  Receive Date: 20080820
  Receipt Date: 20080808
  Transmission Date: 20090109
  Serious: Yes (Hospitalization)
  Sender: FDA-Public Use
  Company Number: ES-JNJFOC-20080802259

PATIENT
  Age: 78 Year
  Sex: Female

DRUGS (13)
  1. REMICADE [Suspect]
     Dosage: NINETH INFUSION
     Route: 042
  2. REMICADE [Suspect]
     Indication: PSORIASIS
     Dosage: INFUSIONS 1 - 8
     Route: 042
  3. LEXATIN [Concomitant]
  4. ENALAPRIL MALEATE [Concomitant]
  5. ASPIRIN [Concomitant]
  6. METFORMIN HCL [Concomitant]
  7. ATARAX [Concomitant]
  8. OMEPRAZOLE [Concomitant]
  9. LIPLAT [Concomitant]
  10. METHOTREXATE SODIUM [Concomitant]
  11. ACFOL [Concomitant]
  12. CARVEDILOL [Concomitant]
  13. SERTRALINE [Concomitant]

REACTIONS (2)
  - MALAISE [None]
  - RESPIRATORY TRACT INFECTION VIRAL [None]
